FAERS Safety Report 20628636 (Version 2)
Quarter: 2022Q1

REPORT INFORMATION
  Report Type: Spontaneous
  Country: GB (occurrence: GB)
  Receive Date: 20220323
  Receipt Date: 20220330
  Transmission Date: 20220423
  Serious: Yes (Hospitalization, Other)
  Sender: FDA-Public Use
  Company Number: GB-MHRA-MED-202203160935289290-E6GIT

PATIENT
  Age: 24 Year
  Sex: Female

DRUGS (10)
  1. CYCLOSPORINE [Suspect]
     Active Substance: CYCLOSPORINE
     Indication: Eczema
     Dosage: 125 MILLIGRAM, BID, (125MG TWICE A DAY)
     Dates: start: 20190723, end: 20191109
  2. CETIRIZINE [Concomitant]
     Active Substance: CETIRIZINE HYDROCHLORIDE
     Dosage: 10 MILLIGRAM, QD, (10MG DAILY)
  3. Cetraben [Concomitant]
     Dosage: UNK
  4. CHLORPHENIRAMINE [Concomitant]
     Active Substance: CHLORPHENIRAMINE
     Dosage: UNK
  5. CITALOPRAM [Concomitant]
     Active Substance: CITALOPRAM HYDROBROMIDE
     Dosage: 40 MILLIGRAM, QD, (40MG DAILY)
  6. CODEINE [Concomitant]
     Active Substance: CODEINE
     Dosage: UNK, (30-50MG 3-4 TIMES A DAY PRN)
  7. CYCLIZINE [Concomitant]
     Active Substance: CYCLIZINE
     Dosage: 50 MILLIGRAM, TID, (50MG TDS PRN )
  8. HYDROCORTONE [Concomitant]
     Active Substance: HYDROCORTISONE
     Dosage: UNK
  9. MOMETASONE [Concomitant]
     Active Substance: MOMETASONE
     Dosage: UNK
  10. ELOCON [Concomitant]
     Active Substance: MOMETASONE FUROATE
     Dosage: 0.1 PERCENT, (0.1% OINTMENT)

REACTIONS (5)
  - Jaundice cholestatic [Recovered/Resolved]
  - Hepatotoxicity [Recovered/Resolved]
  - Cholestatic liver injury [Unknown]
  - Jaundice [Recovered/Resolved]
  - Abdominal pain upper [Recovered/Resolved]

NARRATIVE: CASE EVENT DATE: 20191130
